FAERS Safety Report 6636178-9 (Version None)
Quarter: 2010Q1

REPORT INFORMATION
  Report Type: 
  Country: None (occurrence: None)
  Receive Date: 20100316
  Receipt Date: 20100303
  Transmission Date: 20100710
  Serious: Yes (Hospitalization, Other)
  Sender: FDA-Public Use
  Company Number: US-ELI_LILLY_AND_COMPANY-US201003002526

PATIENT
  Age: 46 Year
  Sex: Male

DRUGS (1)
  1. ZYPREXA [Suspect]
     Indication: SCHIZOPHRENIA
     Dosage: 40 MG, UNK
     Dates: start: 19990101

REACTIONS (13)
  - ALOPECIA [None]
  - BLINDNESS [None]
  - CEREBROVASCULAR ACCIDENT [None]
  - CONSTIPATION [None]
  - CONVULSION [None]
  - IMPAIRED HEALING [None]
  - OEDEMA PERIPHERAL [None]
  - OVERDOSE [None]
  - POLLAKIURIA [None]
  - SEXUALLY TRANSMITTED DISEASE [None]
  - SKIN LESION [None]
  - SYNCOPE [None]
  - VISION BLURRED [None]
